FAERS Safety Report 12889521 (Version 1)
Quarter: 2016Q4

REPORT INFORMATION
  Report Type: Spontaneous
  Country: GB (occurrence: GB)
  Receive Date: 20161027
  Receipt Date: 20161027
  Transmission Date: 20170207
  Serious: Yes (Other)
  Sender: FDA-Public Use
  Company Number: GB-GALDERMA-GB16007071

PATIENT
  Age: 59 Year
  Sex: Female
  Weight: 55 kg

DRUGS (3)
  1. DOXYCYCLINE. [Suspect]
     Active Substance: DOXYCYCLINE
     Indication: ROSACEA
     Dates: start: 20151012
  2. ELLESTE DUET [Concomitant]
     Indication: PRODUCT USED FOR UNKNOWN INDICATION
     Dates: start: 20160719
  3. TRISEQUENS [Concomitant]
     Active Substance: ESTRADIOL\NORETHINDRONE ACETATE
     Indication: PRODUCT USED FOR UNKNOWN INDICATION
     Dates: start: 20130424, end: 20160719

REACTIONS (6)
  - Rash [Recovering/Resolving]
  - Peripheral swelling [Unknown]
  - Blister [Unknown]
  - Lip swelling [Recovering/Resolving]
  - Pruritus [Unknown]
  - Incorrect drug administration duration [Recovered/Resolved]

NARRATIVE: CASE EVENT DATE: 20161004
